FAERS Safety Report 6566688-4 (Version None)
Quarter: 2010Q1

REPORT INFORMATION
  Report Type: 
  Country: None (occurrence: None)
  Receive Date: 20100202
  Receipt Date: 20100128
  Transmission Date: 20100710
  Serious: Yes (Other)
  Sender: FDA-Public Use
  Company Number: BR-ROCHE-682463

PATIENT
  Sex: Female
  Weight: 20 kg

DRUGS (4)
  1. ROCEPHIN [Suspect]
     Indication: DRUG USE FOR UNKNOWN INDICATION
     Dosage: DOSING REGIMEN: 70 MG/KG, 1 GRAM DILUTED IN 10 ML BIDISTILLED WATER + 8 ML SALINE EVERY 12 HOURS
     Route: 042
     Dates: start: 20091128
  2. ROCEPHIN [Suspect]
     Route: 042
     Dates: end: 20091202
  3. KOIDE D [Concomitant]
     Indication: SINUSITIS
     Dates: start: 20091201
  4. METOCLOPRAMIDE [Concomitant]
     Indication: VOMITING

REACTIONS (6)
  - AGNOSIA [None]
  - COORDINATION ABNORMAL [None]
  - DEPRESSED LEVEL OF CONSCIOUSNESS [None]
  - DEPRESSION [None]
  - MENTAL DISORDER [None]
  - OSTEOARTHRITIS [None]
